FAERS Safety Report 15379157 (Version 1)
Quarter: 2018Q3

REPORT INFORMATION
  Report Type: Spontaneous
  Country: US (occurrence: US)
  Receive Date: 20180913
  Receipt Date: 20180913
  Transmission Date: 20181010
  Serious: No
  Sender: FDA-Public Use
  Company Number: US-ASTELLAS-2017US035754

PATIENT
  Sex: Male

DRUGS (1)
  1. XTANDI [Suspect]
     Active Substance: ENZALUTAMIDE
     Indication: PRODUCT USED FOR UNKNOWN INDICATION
     Dosage: 160 MG (4 CAPSULES), ONCE DAILY
     Route: 065
     Dates: start: 201707

REACTIONS (6)
  - Groin pain [Unknown]
  - Decreased appetite [Unknown]
  - Sleep disorder [Unknown]
  - Weight decreased [Unknown]
  - Hypotonia [Unknown]
  - Pain in extremity [Unknown]
